FAERS Safety Report 17661462 (Version 1)
Quarter: 2020Q2

REPORT INFORMATION
  Report Type: Report from Study
  Country: US (occurrence: US)
  Receive Date: 20200413
  Receipt Date: 20200413
  Transmission Date: 20200713
  Serious: Yes (Hospitalization)
  Sender: FDA-Public Use
  Company Number: US-EISAI MEDICAL RESEARCH-EC-2020-072689

PATIENT
  Age: 52 Year
  Sex: Male
  Weight: 136.07 kg

DRUGS (7)
  1. OXYCODONE [Concomitant]
     Active Substance: OXYCODONE
  2. LENVIMA [Suspect]
     Active Substance: LENVATINIB
     Indication: CHOLANGIOCARCINOMA
     Route: 048
     Dates: start: 20200324, end: 2020
  3. VITAMIN B1 [Concomitant]
     Active Substance: THIAMINE HYDROCHLORIDE
  4. ELIQUIS [Concomitant]
     Active Substance: APIXABAN
  5. ONDANSETRON [Concomitant]
     Active Substance: ONDANSETRON
  6. FUROSEMIDE. [Concomitant]
     Active Substance: FUROSEMIDE
  7. SENNA-S [Concomitant]
     Active Substance: DOCUSATE SODIUM\SENNOSIDES

REACTIONS (3)
  - Ammonia increased [Unknown]
  - Rash pruritic [Unknown]
  - Mental status changes [Unknown]

NARRATIVE: CASE EVENT DATE: 202003
